FAERS Safety Report 11080617 (Version 1)
Quarter: 2015Q2

REPORT INFORMATION
  Report Type: Spontaneous
  Country: US (occurrence: None)
  Receive Date: 20150429
  Receipt Date: 20150429
  Transmission Date: 20150821
  Serious: Yes (Other)
  Sender: FDA-Public Use
  Company Number: US-2015VAL000282

PATIENT
  Age: 66 Year
  Sex: Male

DRUGS (4)
  1. DABIGATRAN [Concomitant]
     Active Substance: DABIGATRAN
  2. DOFETILIDE [Concomitant]
     Active Substance: DOFETILIDE
  3. METOPROLOL TARTRATE (METOPROLOL TARTRATE) UNKNOWN [Suspect]
     Active Substance: METOPROLOL TARTRATE
     Indication: VENTRICULAR TACHYCARDIA
  4. ASPIRIN (ACETYLSALICYLIC ACID) [Concomitant]
     Active Substance: ASPIRIN

REACTIONS (3)
  - Torsade de pointes [None]
  - Electrocardiogram QT prolonged [None]
  - Heart rate decreased [None]
